FAERS Safety Report 24988291 (Version 3)
Quarter: 2025Q2

REPORT INFORMATION
  Report Type: Report from Study
  Country: US (occurrence: US)
  Receive Date: 20250220
  Receipt Date: 20250512
  Transmission Date: 20250716
  Serious: Yes (Other)
  Sender: ALEXION PHARMACEUTICALS
  Company Number: US-AstraZeneca-CH-00808991A

PATIENT
  Age: 73 Year
  Weight: 81.633 kg

DRUGS (28)
  1. DAPAGLIFLOZIN [Suspect]
     Active Substance: DAPAGLIFLOZIN
     Dosage: 10 MILLIGRAM, QD
  2. DAPAGLIFLOZIN [Suspect]
     Active Substance: DAPAGLIFLOZIN
     Dosage: 10 MILLIGRAM, QD
  3. TRIAMTERENE [Concomitant]
     Active Substance: TRIAMTERENE
  4. PROPRANOLOL HYDROCHLORIDE [Concomitant]
     Active Substance: PROPRANOLOL HYDROCHLORIDE
  5. MOUNJARO [Concomitant]
     Active Substance: TIRZEPATIDE
  6. JARDIANCE [Concomitant]
     Active Substance: EMPAGLIFLOZIN
  7. HYDRALAZINE [Concomitant]
     Active Substance: HYDRALAZINE HYDROCHLORIDE
  8. AMLODIPINE BESYLATE [Concomitant]
     Active Substance: AMLODIPINE BESYLATE
  9. AMLODIPINE BESYLATE [Concomitant]
     Active Substance: AMLODIPINE BESYLATE
  10. VITAMIN D3 [Concomitant]
     Active Substance: CHOLECALCIFEROL
  11. TRESIBA [Concomitant]
     Active Substance: INSULIN DEGLUDEC
  12. SPIRONOLACTONE [Concomitant]
     Active Substance: SPIRONOLACTONE
  13. SIMVASTATIN [Concomitant]
     Active Substance: SIMVASTATIN
  14. OZEMPIC [Concomitant]
     Active Substance: SEMAGLUTIDE
  15. LOSARTAN POTASSIUM [Concomitant]
     Active Substance: LOSARTAN POTASSIUM
  16. LEVOTHYROXINE SODIUM [Concomitant]
     Active Substance: LEVOTHYROXINE SODIUM
  17. GABAPENTIN [Concomitant]
     Active Substance: GABAPENTIN
  18. FUROSEMIDE [Concomitant]
     Active Substance: FUROSEMIDE
  19. FINASTERIDE [Concomitant]
     Active Substance: FINASTERIDE
  20. ASPIRIN [Concomitant]
     Active Substance: ASPIRIN
  21. ALPHA LIPOIC ACID [Concomitant]
     Active Substance: .ALPHA.-LIPOIC ACID
  22. PROPRANOLOL HYDROCHLORIDE [Concomitant]
     Active Substance: PROPRANOLOL HYDROCHLORIDE
  23. OMEPRAZOLE [Concomitant]
     Active Substance: OMEPRAZOLE
  24. VITAMINS [Concomitant]
     Active Substance: VITAMINS
     Route: 065
  25. VITAMIN B12 [Concomitant]
     Active Substance: CYANOCOBALAMIN
  26. ARGININE [Concomitant]
     Active Substance: ARGININE
  27. CITRULLINE [Concomitant]
     Active Substance: CITRULLINE
  28. COENZYME Q10 [Concomitant]
     Active Substance: DIETARY SUPPLEMENT\UBIDECARENONE
     Dosage: 200 MILLIGRAM, QD

REACTIONS (6)
  - Dizziness [Recovered/Resolved]
  - Fall [Recovered/Resolved]
  - Ligament sprain [Unknown]
  - Intentional dose omission [Unknown]
  - Hypersensitivity [Unknown]
  - Syncope [Unknown]
